FAERS Safety Report 7045087-5 (Version None)
Quarter: 2010Q4

REPORT INFORMATION
  Report Type: 
  Country: None (occurrence: None)
  Receive Date: 20101013
  Receipt Date: 20101013
  Transmission Date: 20110411
  Serious: Yes (Life-Threatening, Hospitalization, Disabling)
  Sender: FDA-Public Use
  Company Number: None

PATIENT
  Age: 66 Year
  Sex: Female
  Weight: 86 kg

DRUGS (6)
  1. PLAVIX [Suspect]
     Indication: CEREBROVASCULAR ACCIDENT PROPHYLAXIS
     Dosage: ONE TABLET ONCE DAILY PO
     Route: 048
     Dates: start: 20101003, end: 20101008
  2. PLAVIX [Suspect]
     Indication: GASTRITIS
     Dosage: ONE TABLET ONCE DAILY PO
     Route: 048
     Dates: start: 20101003, end: 20101008
  3. METFORMIN [Concomitant]
  4. MIXTARD HUMAN 70/30 [Concomitant]
  5. ELTROXIN [Concomitant]
  6. IBRBESARTAN [Concomitant]

REACTIONS (3)
  - ALTERED STATE OF CONSCIOUSNESS [None]
  - CONVULSION [None]
  - THROMBOTIC THROMBOCYTOPENIC PURPURA [None]
